FAERS Safety Report 7302529-5 (Version None)
Quarter: 2011Q1

REPORT INFORMATION
  Report Type: 
  Country: None (occurrence: None)
  Receive Date: 20110218
  Receipt Date: 20110215
  Transmission Date: 20110831
  Serious: Yes (Other)
  Sender: FDA-Public Use
  Company Number: US-PFIZER INC-2010161172

PATIENT
  Sex: Female

DRUGS (6)
  1. LEXAPRO [Concomitant]
     Indication: DEPRESSION
     Dosage: 20 MG, UNK
     Dates: start: 20081101
  2. GEODON [Suspect]
     Indication: PSYCHOTIC DISORDER
     Dosage: 60 MG, 2X/DAY
     Dates: start: 20100526, end: 20100708
  3. GEODON [Suspect]
     Indication: DEPRESSION
  4. GEODON [Suspect]
     Indication: BIPOLAR DISORDER
     Dosage: 80 MG, 2X/DAY
     Route: 048
     Dates: start: 20050331
  5. TRAZODONE [Concomitant]
     Indication: INSOMNIA
     Dosage: UNK
     Dates: start: 20090101
  6. SEROQUEL [Concomitant]
     Indication: INSOMNIA
     Dosage: 300 MG, AT BEDTIME
     Dates: start: 20050601, end: 20081001

REACTIONS (2)
  - TARDIVE DYSKINESIA [None]
  - DYSKINESIA [None]
